FAERS Safety Report 6396917-1 (Version None)
Quarter: 2009Q4

REPORT INFORMATION
  Report Type: 
  Country: None (occurrence: None)
  Receive Date: 20091012
  Receipt Date: 20090910
  Transmission Date: 20100525
  Serious: No
  Sender: FDA-Public Use
  Company Number: US-BAYER-200919776NA

PATIENT
  Age: 52 Year
  Sex: Female
  Weight: 82 kg

DRUGS (2)
  1. CLIMARA PRO [Suspect]
     Indication: MENOPAUSAL SYMPTOMS
     Dosage: 0.045/0.015 MG/DAY    (APPLICATION SITE IS ABDOMEN)
     Route: 061
     Dates: start: 20080101
  2. CLIMARA PRO [Suspect]
     Dosage: 0.045/0.015 MG/DAY    (APPLICATION SITE IS ABDOMEN)
     Route: 061
     Dates: start: 20090101

REACTIONS (3)
  - METRORRHAGIA [None]
  - RASH [None]
  - SKIN IRRITATION [None]
